FAERS Safety Report 10935354 (Version 1)
Quarter: 2015Q1

REPORT INFORMATION
  Report Type: Spontaneous
  Country: US (occurrence: US)
  Receive Date: 20150320
  Receipt Date: 20150320
  Transmission Date: 20150721
  Serious: No
  Sender: FDA-Public Use
  Company Number: US-BIOMARINAP-US-2015-105802

PATIENT
  Age: 12 Year
  Sex: Female
  Weight: 25.9 kg

DRUGS (1)
  1. NAGLAZYME [Suspect]
     Active Substance: GALSULFASE
     Indication: MUCOPOLYSACCHARIDOSIS VI
     Dosage: 25 MG, QW
     Route: 042
     Dates: start: 20060410

REACTIONS (2)
  - Otitis media [Recovered/Resolved with Sequelae]
  - Middle ear effusion [Recovered/Resolved with Sequelae]

NARRATIVE: CASE EVENT DATE: 20150312
